FAERS Safety Report 4383819-5 (Version None)
Quarter: 2004Q2

REPORT INFORMATION
  Report Type: 
  Country: None (occurrence: None)
  Receive Date: 20040608
  Receipt Date: 20031103
  Transmission Date: 20050107
  Serious: Yes (Hospitalization, Other)
  Sender: FDA-Public Use
  Company Number: 200314046BCC

PATIENT
  Age: 24 Year
  Sex: Female

DRUGS (1)
  1. ALEVE [Suspect]
     Dosage: 3520 MG, ONCE, ORAL
     Route: 048
     Dates: start: 20031031

REACTIONS (1)
  - NO ADVERSE DRUG EFFECT [None]
